FAERS Safety Report 12551922 (Version 1)
Quarter: 2016Q3

REPORT INFORMATION
  Report Type: Spontaneous
  Country: US (occurrence: US)
  Receive Date: 20160713
  Receipt Date: 20160713
  Transmission Date: 20161109
  Serious: No
  Sender: FDA-Public Use
  Company Number: PHEH2016US016787

PATIENT
  Sex: Male

DRUGS (2)
  1. RECLAST [Suspect]
     Active Substance: ZOLEDRONIC ACID
     Indication: PRODUCT USED FOR UNKNOWN INDICATION
     Route: 042
  2. ADVIL [Concomitant]
     Active Substance: IBUPROFEN
     Indication: PRODUCT USED FOR UNKNOWN INDICATION
     Route: 065

REACTIONS (11)
  - Eye pain [Unknown]
  - Arthralgia [Unknown]
  - Balance disorder [Unknown]
  - Pyrexia [Unknown]
  - Urinary hesitation [Unknown]
  - Spinal pain [Unknown]
  - Chills [Unknown]
  - Insomnia [Unknown]
  - Dysphonia [Unknown]
  - Myalgia [Unknown]
  - Musculoskeletal stiffness [Unknown]
